FAERS Safety Report 14315399 (Version 3)
Quarter: 2018Q1

REPORT INFORMATION
  Report Type: Report from Study
  Country: AR (occurrence: AR)
  Receive Date: 20171221
  Receipt Date: 20180223
  Transmission Date: 20180509
  Serious: Yes (Hospitalization, Other)
  Sender: FDA-Public Use
  Company Number: AR-ACTELION-A-US2017-164627

PATIENT
  Age: 42 Year
  Sex: Male

DRUGS (5)
  1. VENTAVIS [Suspect]
     Active Substance: ILOPROST
     Indication: PRODUCT USED FOR UNKNOWN INDICATION
     Route: 055
  2. FUROSEMIDE. [Concomitant]
     Active Substance: FUROSEMIDE
  3. SINTROM [Concomitant]
     Active Substance: ACENOCOUMAROL
  4. ADEMPAS [Suspect]
     Active Substance: RIOCIGUAT
     Indication: PULMONARY HYPERTENSION
     Dosage: 1 MG, UNK
     Route: 065
     Dates: start: 20170709
  5. EPLERONA [Concomitant]

REACTIONS (4)
  - White blood cell disorder [Recovered/Resolved]
  - Angioplasty [Recovered/Resolved]
  - Lung disorder [Recovered/Resolved]
  - Cardiac failure [Unknown]

NARRATIVE: CASE EVENT DATE: 20171117
